FAERS Safety Report 7686576-X (Version None)
Quarter: 2011Q3

REPORT INFORMATION
  Report Type: 
  Country: None (occurrence: None)
  Receive Date: 20110816
  Receipt Date: 20110810
  Transmission Date: 20111222
  Serious: Yes (Other)
  Sender: FDA-Public Use
  Company Number: CA-MERCK-1108USA01674

PATIENT
  Age: 58 Year
  Sex: Male

DRUGS (4)
  1. METFORMIN [Concomitant]
     Route: 065
  2. JANUVIA [Suspect]
     Indication: TYPE 2 DIABETES MELLITUS
     Route: 048
     Dates: end: 20110101
  3. MICARDIS [Concomitant]
     Route: 065
  4. DIAMICRON [Concomitant]
     Route: 065

REACTIONS (3)
  - DRUG INEFFECTIVE [None]
  - CREATININE RENAL CLEARANCE INCREASED [None]
  - GLOMERULAR FILTRATION RATE DECREASED [None]
